FAERS Safety Report 12618751 (Version 3)
Quarter: 2016Q3

REPORT INFORMATION
  Report Type: Spontaneous
  Country: BE (occurrence: BE)
  Receive Date: 20160803
  Receipt Date: 20160810
  Transmission Date: 20161109
  Serious: Yes (Death)
  Sender: FDA-Public Use
  Company Number: BE-SA-2016SA139635

PATIENT
  Age: 8 Year
  Sex: Male

DRUGS (8)
  1. MEDROL [Concomitant]
     Active Substance: METHYLPREDNISOLONE
     Indication: INFLAMMATION
     Dosage: POSOLOGY 16/8/8/4/4MG PER OS
     Route: 048
     Dates: start: 20151012, end: 20151016
  2. HYDREA [Concomitant]
     Active Substance: HYDROXYUREA
     Dates: start: 201509
  3. CALCIUM [Concomitant]
     Active Substance: CALCIUM
     Dates: start: 201509
  4. FOLIC ACID. [Concomitant]
     Active Substance: FOLIC ACID
     Dates: start: 201509
  5. TETRAVAC [Concomitant]
     Dates: start: 20151008
  6. VITAMIN D [Concomitant]
     Active Substance: CHOLECALCIFEROL
     Dates: start: 201509
  7. CLAFORAN [Suspect]
     Active Substance: CEFOTAXIME SODIUM
     Route: 042
  8. AMOXICILLIN. [Concomitant]
     Active Substance: AMOXICILLIN
     Dates: start: 201509

REACTIONS (1)
  - Cardiac arrest [Fatal]

NARRATIVE: CASE EVENT DATE: 20160526
